FAERS Safety Report 9592943 (Version 1)
Quarter: 2013Q3

REPORT INFORMATION
  Report Type: Spontaneous
  Country: US (occurrence: None)
  Receive Date: 20130916
  Receipt Date: 20130916
  Transmission Date: 20140515
  Serious: Yes (Other)
  Sender: FDA-Public Use
  Company Number: FK201301570

PATIENT
  Age: 56 Year
  Sex: Female

DRUGS (2)
  1. CISPLATIN [Suspect]
     Indication: PRODUCT USED FOR UNKNOWN INDICATION
  2. ROLAPITANT (ROLAPITANT) (ROLAPITANT) [Concomitant]
     Indication: PROPHYLAXIS OF NAUSEA AND VOMITING

REACTIONS (2)
  - Nausea [None]
  - Vomiting [None]
